FAERS Safety Report 5653712-6 (Version None)
Quarter: 2008Q1

REPORT INFORMATION
  Report Type: 
  Country: None (occurrence: None)
  Receive Date: 20080131
  Receipt Date: 20071010
  Transmission Date: 20080703
  Serious: No
  Sender: FDA-Public Use
  Company Number: US200710002774

PATIENT
  Age: 59 Year
  Sex: Female

DRUGS (1)
  1. BYETTA [Suspect]
     Dosage: 10 UG

REACTIONS (7)
  - BRONCHITIS [None]
  - CONSTIPATION [None]
  - HYPERHIDROSIS [None]
  - INFLUENZA [None]
  - INJECTION SITE IRRITATION [None]
  - PYREXIA [None]
  - WEIGHT DECREASED [None]
